FAERS Safety Report 9802472 (Version 2)
Quarter: 2014Q2

REPORT INFORMATION
  Report Type: Spontaneous
  Country: IE (occurrence: IE)
  Receive Date: 20140107
  Receipt Date: 20140404
  Transmission Date: 20141212
  Serious: Yes (Hospitalization)
  Sender: FDA-Public Use
  Company Number: US-ASTRAZENECA-2014SE00658

PATIENT
  Age: 186 Day
  Sex: Female
  Weight: 6.4 kg

DRUGS (6)
  1. SYNAGIS [Suspect]
     Indication: HEART DISEASE CONGENITAL
     Route: 030
     Dates: start: 20130910, end: 20130910
  2. SYNAGIS [Suspect]
     Indication: ANTIVIRAL PROPHYLAXIS
     Route: 030
     Dates: start: 20130910, end: 20130910
  3. SYNAGIS [Suspect]
     Indication: HEART DISEASE CONGENITAL
     Route: 030
     Dates: start: 20131127, end: 20131127
  4. SYNAGIS [Suspect]
     Indication: ANTIVIRAL PROPHYLAXIS
     Route: 030
     Dates: start: 20131127, end: 20131127
  5. SPIRONOLACTONE [Concomitant]
     Indication: CARDIAC DISORDER
     Route: 048
  6. FRUSEMIDE [Concomitant]
     Indication: CARDIAC DISORDER
     Route: 048

REACTIONS (8)
  - Postoperative wound infection [Recovering/Resolving]
  - Wound secretion [Recovering/Resolving]
  - Postoperative wound complication [Recovering/Resolving]
  - Cough [Recovered/Resolved]
  - Croup infectious [Recovering/Resolving]
  - Atelectasis [Unknown]
  - Dyspnoea [Unknown]
  - Respiratory syncytial virus test positive [Unknown]
